FAERS Safety Report 12395436 (Version 1)
Quarter: 2016Q2

REPORT INFORMATION
  Report Type: Spontaneous
  Country: US (occurrence: US)
  Receive Date: 20160523
  Receipt Date: 20160523
  Transmission Date: 20160815
  Serious: No
  Sender: FDA-Public Use
  Company Number: US-MEDA-2016050063

PATIENT
  Age: 92 Year
  Sex: Male
  Weight: 79 kg

DRUGS (1)
  1. MUSE [Suspect]
     Active Substance: ALPROSTADIL
     Indication: ERECTILE DYSFUNCTION
     Route: 066
     Dates: start: 2016

REACTIONS (1)
  - Application site acne [Recovering/Resolving]

NARRATIVE: CASE EVENT DATE: 201604
